FAERS Safety Report 16105662 (Version 3)
Quarter: 2019Q2

REPORT INFORMATION
  Report Type: Report from Study
  Country: US (occurrence: US)
  Receive Date: 20190322
  Receipt Date: 20190501
  Transmission Date: 20190711
  Serious: Yes (Hospitalization, Other)
  Sender: FDA-Public Use
  Company Number: US-ROCHE-2282849

PATIENT
  Age: 67 Year
  Sex: Male

DRUGS (1)
  1. OCREVUS [Suspect]
     Active Substance: OCRELIZUMAB
     Indication: PRIMARY PROGRESSIVE MULTIPLE SCLEROSIS
     Dosage: ONGOING:YES?NEXT INFUSION: 11/APR/2018, 16/OCT/2018
     Route: 065
     Dates: start: 20180327

REACTIONS (7)
  - Progressive multiple sclerosis [Unknown]
  - Blood urine present [Unknown]
  - Cognitive disorder [Unknown]
  - Urinary tract infection [Not Recovered/Not Resolved]
  - Testicular mass [Unknown]
  - Prostatomegaly [Unknown]
  - Cerebrovascular accident [Unknown]

NARRATIVE: CASE EVENT DATE: 201901
